FAERS Safety Report 16038688 (Version 1)
Quarter: 2019Q1

REPORT INFORMATION
  Report Type: Spontaneous
  Country: US (occurrence: US)
  Receive Date: 20190206
  Receipt Date: 20190206
  Transmission Date: 20190418
  Serious: No
  Sender: FDA-Public Use
  Company Number: None

PATIENT
  Age: 74 Year
  Sex: Male

DRUGS (1)
  1. HARVONI [Suspect]
     Active Substance: LEDIPASVIR\SOFOSBUVIR
     Indication: HEPATITIS C
     Route: 048
     Dates: start: 20190110

REACTIONS (6)
  - Chest pain [None]
  - Dizziness [None]
  - Nausea [None]
  - Insomnia [None]
  - Thirst [None]
  - Asthenia [None]

NARRATIVE: CASE EVENT DATE: 20190206
